FAERS Safety Report 10687662 (Version 1)
Quarter: 2014Q4

REPORT INFORMATION
  Report Type: Report from Study
  Country: GB (occurrence: None)
  Receive Date: 20141230
  Receipt Date: 20141230
  Transmission Date: 20150529
  Serious: Yes (Other)
  Sender: FDA-Public Use
  Company Number: 201412IM008058

PATIENT
  Age: 63 Year
  Sex: Male

DRUGS (1)
  1. ESBRIET [Suspect]
     Active Substance: PIRFENIDONE
     Indication: IDIOPATHIC PULMONARY FIBROSIS
     Route: 048
     Dates: start: 201407, end: 201407

REACTIONS (5)
  - Peripheral swelling [None]
  - Swelling face [None]
  - Lip swelling [None]
  - Skin discolouration [None]
  - Atrial fibrillation [None]

NARRATIVE: CASE EVENT DATE: 201407
